FAERS Safety Report 16313585 (Version 3)
Quarter: 2019Q2

REPORT INFORMATION
  Report Type: Spontaneous
  Country: US (occurrence: US)
  Receive Date: 20190515
  Receipt Date: 20190627
  Transmission Date: 20190711
  Serious: No
  Sender: FDA-Public Use
  Company Number: US-EMD SERONO-9090433

PATIENT
  Age: 47 Year
  Sex: Male

DRUGS (1)
  1. REBIF [Suspect]
     Active Substance: INTERFERON BETA-1A
     Indication: MULTIPLE SCLEROSIS
     Route: 058
     Dates: start: 20181113

REACTIONS (8)
  - Muscle spasms [Not Recovered/Not Resolved]
  - Migraine [Recovered/Resolved]
  - Product storage error [Unknown]
  - Insurance issue [Unknown]
  - Muscle rigidity [Unknown]
  - Drug ineffective [Unknown]
  - Product dose omission [Unknown]
  - Injection site pain [Unknown]

NARRATIVE: CASE EVENT DATE: 201905
